FAERS Safety Report 13422836 (Version 1)
Quarter: 2017Q2

REPORT INFORMATION
  Report Type: Spontaneous
  Country: AU (occurrence: AU)
  Receive Date: 20170410
  Receipt Date: 20170410
  Transmission Date: 20170830
  Serious: Yes (Death, Congenital Anomaly, Other)
  Sender: FDA-Public Use
  Company Number: AU-MYLANLABS-2017M1022103

PATIENT

DRUGS (4)
  1. DIAZEPAM. [Suspect]
     Active Substance: DIAZEPAM
     Indication: DEPRESSION
     Route: 064
  2. ALPRAZOLAM. [Interacting]
     Active Substance: ALPRAZOLAM
     Indication: DEPRESSION
     Route: 064
  3. PIMOZIDE. [Interacting]
     Active Substance: PIMOZIDE
     Indication: DEPRESSION
     Dosage: 1-2MG DAILY
     Route: 064
  4. TRANYLCYPROMINE [Interacting]
     Active Substance: TRANYLCYPROMINE
     Indication: DEPRESSION
     Dosage: BETWEEN 100 MG AND 130 MG DAILY
     Route: 064

REACTIONS (5)
  - Foetal exposure during pregnancy [Fatal]
  - Lung disorder [Not Recovered/Not Resolved]
  - Placental infarction [Fatal]
  - Atrioventricular septal defect [Not Recovered/Not Resolved]
  - Dysmorphism [Not Recovered/Not Resolved]
